FAERS Safety Report 4603195-X (Version None)
Quarter: 2005Q1

REPORT INFORMATION
  Report Type: 
  Country: None (occurrence: None)
  Receive Date: 20050307
  Receipt Date: 20050225
  Transmission Date: 20050727
  Serious: Yes (Other)
  Sender: FDA-Public Use
  Company Number: 2004-12-1120

PATIENT
  Age: 53 Year
  Sex: Male
  Weight: 76 kg

DRUGS (6)
  1. TEMODAL [Suspect]
     Indication: BRAIN NEOPLASM
     Dosage: 150 MG ORAL
     Route: 048
     Dates: start: 20041020, end: 20041203
  2. RADIATION THERAPY INJECTABLES [Suspect]
     Indication: BRAIN NEOPLASM
     Dates: start: 20041020, end: 20041203
  3. DEXAMETHASONE [Concomitant]
  4. SEPTRA [Concomitant]
  5. PANTOPRAZOL [Concomitant]
  6. SINEMET CR [Concomitant]

REACTIONS (7)
  - ALANINE AMINOTRANSFERASE INCREASED [None]
  - ASPARTATE AMINOTRANSFERASE INCREASED [None]
  - BLOOD ALKALINE PHOSPHATASE INCREASED [None]
  - BLOOD BILIRUBIN INCREASED [None]
  - DIABETES MELLITUS [None]
  - GAMMA-GLUTAMYLTRANSFERASE INCREASED [None]
  - LIVER DISORDER [None]
